FAERS Safety Report 6439595-5 (Version None)
Quarter: 2009Q4

REPORT INFORMATION
  Report Type: 
  Country: None (occurrence: None)
  Receive Date: 20091113
  Receipt Date: 20091105
  Transmission Date: 20100525
  Serious: Yes (Life-Threatening)
  Sender: FDA-Public Use
  Company Number: B0602025A

PATIENT
  Sex: Female

DRUGS (3)
  1. ZOPHREN [Suspect]
     Dosage: 8MG SINGLE DOSE
     Route: 042
     Dates: start: 20090827, end: 20090827
  2. DETICENE [Suspect]
     Indication: MALIGNANT MELANOMA STAGE IV
     Dosage: 400MGM2 SINGLE DOSE
     Route: 042
     Dates: start: 20090827, end: 20090827
  3. CARBOPLATIN [Suspect]
     Indication: MALIGNANT MELANOMA STAGE IV
     Dosage: 300MGM2 SINGLE DOSE
     Route: 042
     Dates: start: 20090827, end: 20090827

REACTIONS (7)
  - ANAPHYLACTIC SHOCK [None]
  - LARYNGEAL OEDEMA [None]
  - LIP OEDEMA [None]
  - NAUSEA [None]
  - PARAESTHESIA [None]
  - TACHYCARDIA [None]
  - URTICARIA [None]
